FAERS Safety Report 4356487-6 (Version None)
Quarter: 2004Q2

REPORT INFORMATION
  Report Type: 
  Country: None (occurrence: None)
  Receive Date: 20040507
  Receipt Date: 20040423
  Transmission Date: 20050107
  Serious: Yes (Other)
  Sender: FDA-Public Use
  Company Number: 2004BL002984

PATIENT
  Age: 47 Year
  Sex: Male
  Weight: 95.2554 kg

DRUGS (12)
  1. PHENYLEPHRINE HYDROCHLORIDE OPTHALMIC SOLUTION USP, 2.5% [Suspect]
     Indication: CATARACT OPERATION
     Dosage: 27 GTT; DAILY, OPHTHALMIC
     Route: 047
     Dates: start: 20040413, end: 20040413
  2. PHENYLEPHRINE HYDROCHLORIDE OPHTHALMIC SOLUTION USP, 2.5% [Suspect]
  3. PHENYLEPHRINE HYDROCHLORIDE OPHTHALMIC SOLUTION USP, 2.5% [Suspect]
  4. PHENYLEPHRINE HYDROCHLORIDE OPHTHALMIC SOLUTION USP, 2.5% [Suspect]
  5. AMVISC PLUS (MEDICAL DEVICE) [Suspect]
     Indication: CATARACT OPERATION
     Dates: start: 20040413, end: 20040413
  6. AMVISC PLUS (MEDICAL DEVICE) [Suspect]
  7. AMVISC PLUS (MEDICAL DEVICE) [Suspect]
  8. ALCON BALANCED SALT SOLUTION [Suspect]
     Indication: CATARACT OPERATION
     Dates: start: 20040413, end: 20040413
  9. EPINEPHRINE [Suspect]
     Indication: CATARACT OPERATION
     Dates: start: 20040413, end: 20040413
  10. VANCOMYCIN [Suspect]
     Indication: CATARACT OPERATION
     Dates: start: 20040413, end: 20040413
  11. VISCOAT (MEDICAL DEVICE) [Suspect]
     Indication: CATARACT OPERATION
     Dates: start: 20040413, end: 20040413
  12. 1% LIDOCAINE MPF STERILE WATER FOR INJECTION [Suspect]
     Indication: CATARACT OPERATION
     Dates: start: 20040413, end: 20040413

REACTIONS (5)
  - ANTERIOR CHAMBER DISORDER [None]
  - CATARACT OPERATION COMPLICATION [None]
  - EYE PAIN [None]
  - VISION BLURRED [None]
  - VISUAL DISTURBANCE [None]
